FAERS Safety Report 11049683 (Version 1)
Quarter: 2015Q2

REPORT INFORMATION
  Report Type: Spontaneous
  Country: US (occurrence: US)
  Receive Date: 20150420
  Receipt Date: 20150420
  Transmission Date: 20150821
  Serious: No
  Sender: FDA-Public Use
  Company Number: US-PURDUE-USA-2015-0120813

PATIENT
  Age: 39 Year
  Sex: Female

DRUGS (3)
  1. OXYCONTIN [Suspect]
     Active Substance: OXYCODONE HYDROCHLORIDE
     Dosage: 40 MG, TID
     Route: 048
     Dates: start: 2014
  2. OXYCONTIN [Suspect]
     Active Substance: OXYCODONE HYDROCHLORIDE
     Dosage: 40 MG, TID
     Route: 048
     Dates: start: 201412
  3. OXYCONTIN [Suspect]
     Active Substance: OXYCODONE HYDROCHLORIDE
     Indication: MYELODYSPLASTIC SYNDROME
     Dosage: 40 MG, TID
     Route: 048
     Dates: start: 20150114

REACTIONS (6)
  - Pain [Unknown]
  - Inadequate analgesia [Unknown]
  - Somnolence [Unknown]
  - Drug ineffective [Unknown]
  - Sedation [Unknown]
  - Agitation [Unknown]

NARRATIVE: CASE EVENT DATE: 20150114
